FAERS Safety Report 17216576 (Version 1)
Quarter: 2019Q4

REPORT INFORMATION
  Report Type: Spontaneous
  Country: NL (occurrence: NL)
  Receive Date: 20191230
  Receipt Date: 20191230
  Transmission Date: 20200122
  Serious: Yes (Hospitalization)
  Sender: FDA-Public Use
  Company Number: NL-B.I. PHARMACEUTICALS,INC./RIDGEFIELD-2019-12-122443

PATIENT
  Age: 48 Year
  Sex: Female
  Weight: 70 kg

DRUGS (7)
  1. OXYCODON [Concomitant]
     Active Substance: OXYCODONE
     Dosage: TABLET MET GEREGULEERDE AFGIFTE, 10 MG (MILLIGRAM)
     Route: 065
  2. MONOCEDOCARD [Concomitant]
     Indication: PRODUCT USED FOR UNKNOWN INDICATION
     Dosage: 1.2T
     Route: 065
  3. OXYCODON [Concomitant]
     Active Substance: OXYCODONE
     Indication: PRODUCT USED FOR UNKNOWN INDICATION
     Dosage: CAPSULE, 5 MG (MILLIGRAM)
     Route: 065
  4. SOTALOL. [Concomitant]
     Active Substance: SOTALOL
     Indication: PRODUCT USED FOR UNKNOWN INDICATION
     Dosage: TABLET, 80 MG (MILLIGRAM)
     Route: 065
  5. PRADAXA [Suspect]
     Active Substance: DABIGATRAN ETEXILATE MESYLATE
     Indication: ATRIAL FIBRILLATION
     Dosage: CAPSULE, 150 MG (MILLIGRAM), 2 KEER PER DAG, 1
     Route: 065
     Dates: start: 201810
  6. IVABRADINE [Concomitant]
     Active Substance: IVABRADINE
     Indication: PRODUCT USED FOR UNKNOWN INDICATION
     Dosage: 2.2TABL VAN 5 MG
     Route: 065
  7. NEURONTIN [Concomitant]
     Active Substance: GABAPENTIN
     Indication: PRODUCT USED FOR UNKNOWN INDICATION
     Dosage: CAPSULE, 300 MG (MILLIGRAM)
     Route: 065

REACTIONS (2)
  - Femoral artery embolism [Recovered/Resolved]
  - Therapeutic product ineffective [Recovered/Resolved]

NARRATIVE: CASE EVENT DATE: 20191207
